FAERS Safety Report 7630535-X (Version None)
Quarter: 2011Q3

REPORT INFORMATION
  Report Type: 
  Country: None (occurrence: None)
  Receive Date: 20110722
  Receipt Date: 20110713
  Transmission Date: 20111222
  Serious: Yes (Other)
  Sender: FDA-Public Use
  Company Number: PHEH2010US01808

PATIENT
  Sex: Female

DRUGS (10)
  1. ASPIRIN [Concomitant]
     Dosage: 325 MG, QD
  2. ARIMIDEX [Concomitant]
     Dosage: 1 MG, QD
  3. DIOVAN [Concomitant]
     Dosage: 160 MG, QD
  4. ISOSORBIDE DINITRATE [Concomitant]
     Dosage: 20 MG, BID
  5. OMEPRAZOLE [Concomitant]
     Dosage: 20 MG, QD
  6. CALCIUM CARBONATE [Concomitant]
     Dosage: BID
  7. ZOMETA [Suspect]
     Dosage: UNK
     Dates: start: 20040501, end: 20061001
  8. ZETIA [Concomitant]
     Dosage: 10 MG, QD
  9. TOPROL-XL [Concomitant]
     Dosage: 25 MG, QD
  10. PRAVACHOL [Concomitant]
     Dosage: 20 MG, QD

REACTIONS (13)
  - CHOLECYSTECTOMY [None]
  - HYPERLIPIDAEMIA [None]
  - TOOTH LOSS [None]
  - STOMATITIS [None]
  - INJURY [None]
  - PAIN [None]
  - HYPERTENSION [None]
  - ANXIETY [None]
  - QUALITY OF LIFE DECREASED [None]
  - BONE LESION [None]
  - OSTEONECROSIS OF JAW [None]
  - DISABILITY [None]
  - MUSCLE SPASMS [None]
